FAERS Safety Report 19262413 (Version 1)
Quarter: 2021Q2

REPORT INFORMATION
  Report Type: Spontaneous
  Country: US (occurrence: US)
  Receive Date: 20210516
  Receipt Date: 20210516
  Transmission Date: 20210717
  Serious: No
  Sender: FDA-Public Use
  Company Number: US-JNJFOC-20210459046

PATIENT

DRUGS (1)
  1. ZYRTEC [Suspect]
     Active Substance: CETIRIZINE HYDROCHLORIDE
     Indication: PRODUCT USED FOR UNKNOWN INDICATION
     Dosage: WENT OFF IT A FEW YEARS AGO THEN TOOK ZYRTEC AGAIN ON AN UNSPECIFIED DATE
     Route: 065

REACTIONS (3)
  - Urticaria [Unknown]
  - Withdrawal syndrome [Unknown]
  - Pruritus [Unknown]
